FAERS Safety Report 9522487 (Version 1)
Quarter: 2013Q1

REPORT INFORMATION
  Report Type: Spontaneous
  Country: US (occurrence: None)
  Receive Date: 20130305
  Receipt Date: 20130305
  Transmission Date: 20140127
  Serious: Yes (Life-Threatening, Hospitalization)
  Sender: FDA-Public Use
  Company Number: 163-21880-12063840

PATIENT
  Age: 63 Year
  Sex: Male
  Weight: 65 kg

DRUGS (2)
  1. REVLIMID ( LENALIDOMIDE) ( 5 MILLIGRAM, CAPSULES) [Suspect]
     Indication: MYELOFIBROSIS
     Dosage: 5 MG , 1 IN 1 D, PO
     Route: 048
     Dates: start: 20120425, end: 20120523
  2. PREDNISONE (PREDNISONE) [Concomitant]

REACTIONS (3)
  - Anaemia [None]
  - White blood cell count decreased [None]
  - Platelet count decreased [None]
